FAERS Safety Report 4625601-7 (Version None)
Quarter: 2005Q1

REPORT INFORMATION
  Report Type: 
  Country: None (occurrence: None)
  Receive Date: 20050331
  Receipt Date: 20050331
  Transmission Date: 20050727
  Serious: No
  Sender: FDA-Public Use
  Company Number: None

PATIENT
  Sex: Female
  Weight: 14 kg

DRUGS (5)
  1. VINCRISTINE [Suspect]
     Dosage: 0.9 MG Q WK
     Dates: start: 20050131
  2. CYCLOPHOSPHAMIDE [Suspect]
     Dosage: 1.4 MG Q WK
  3. ACT-D [Suspect]
     Dosage: .65 MG Q WK
  4. MESNA [Suspect]
     Dosage: 300 MG X 4 Q WK
  5. GCSF [Suspect]
     Dosage: 7.5 MG SQ QD
     Route: 058

REACTIONS (2)
  - PNEUMOCYSTIS JIROVECI INFECTION [None]
  - RESPIRATORY DISTRESS [None]
